FAERS Safety Report 15758035 (Version 1)
Quarter: 2018Q4

REPORT INFORMATION
  Report Type: Spontaneous
  Country: US (occurrence: US)
  Receive Date: 20181225
  Receipt Date: 20181225
  Transmission Date: 20190205
  Serious: Yes (Congenital Anomaly)
  Sender: FDA-Public Use
  Company Number: US-ROCHE-2231503

PATIENT

DRUGS (2)
  1. OCREVUS [Suspect]
     Active Substance: OCRELIZUMAB
     Indication: PRODUCT USED FOR UNKNOWN INDICATION
     Route: 064
     Dates: start: 20171213
  2. OCREVUS [Suspect]
     Active Substance: OCRELIZUMAB
     Route: 064
     Dates: start: 20180103

REACTIONS (2)
  - Foetal exposure during pregnancy [Unknown]
  - Spina bifida [Unknown]
